FAERS Safety Report 19679019 (Version 2)
Quarter: 2021Q3

REPORT INFORMATION
  Report Type: Other
  Country: GB (occurrence: GB)
  Receive Date: 20210810
  Receipt Date: 20210928
  Transmission Date: 20211014
  Serious: Yes (Other)
  Sender: FDA-Public Use
  Company Number: GB-STRIDES ARCOLAB LIMITED-2021SP026075

PATIENT
  Age: 67 Year
  Sex: Male

DRUGS (2)
  1. ABIRATERONE ACETATE. [Suspect]
     Active Substance: ABIRATERONE ACETATE
     Indication: PROSTATE CANCER
     Dosage: 1 GRAM EVERY 1 DAY
     Route: 048
     Dates: start: 20201027, end: 20210909
  2. PREDNISOLONE. [Suspect]
     Active Substance: PREDNISOLONE
     Indication: PROSTATE CANCER
     Dosage: 10 MILLIGRAM EVERY  1 DAY
     Route: 065
     Dates: start: 20201027, end: 20210720

REACTIONS (7)
  - Back pain [Unknown]
  - Haematuria [Recovered/Resolved]
  - Prostatic specific antigen increased [Unknown]
  - Pain in extremity [Unknown]
  - Headache [Unknown]
  - Chest pain [Unknown]
  - Prostate cancer [Unknown]

NARRATIVE: CASE EVENT DATE: 202106
